FAERS Safety Report 13731781 (Version 2)
Quarter: 2017Q3

REPORT INFORMATION
  Report Type: Spontaneous
  Country: US (occurrence: US)
  Receive Date: 20170707
  Receipt Date: 20170710
  Transmission Date: 20171127
  Serious: No
  Sender: FDA-Public Use
  Company Number: US-PFIZER INC-2017294172

PATIENT
  Age: 65 Year
  Sex: Male

DRUGS (1)
  1. MORPHINE SULFATE. [Suspect]
     Active Substance: MORPHINE SULFATE
     Dosage: UNK

REACTIONS (5)
  - Hallucination [Unknown]
  - Agitation [Unknown]
  - Drug hypersensitivity [Unknown]
  - Nausea [Unknown]
  - Confusional state [Unknown]
